APPROVED DRUG PRODUCT: METHYLDOPA
Active Ingredient: METHYLDOPA
Strength: 500MG
Dosage Form/Route: TABLET;ORAL
Application: A072128 | Product #001
Applicant: PLIVA INC
Approved: Jul 7, 1988 | RLD: No | RS: No | Type: DISCN